FAERS Safety Report 15065270 (Version 2)
Quarter: 2019Q1

REPORT INFORMATION
  Report Type: Spontaneous
  Country: ES (occurrence: ES)
  Receive Date: 20180626
  Receipt Date: 20190223
  Transmission Date: 20190417
  Serious: Yes (Hospitalization, Other)
  Sender: FDA-Public Use
  Company Number: ES-ACCORD-068637

PATIENT
  Age: 67 Year
  Sex: Male

DRUGS (5)
  1. FLUPHENAZINE [Interacting]
     Active Substance: FLUPHENAZINE
     Indication: SCHIZOPHRENIA
     Dosage: FOR 6 YEARS UP TO DATE (1 VIAL OF 25 MG EVERY 4 WEEKS)
  2. BIPERIDEN [Interacting]
     Active Substance: BIPERIDEN
     Indication: SCHIZOPHRENIA
     Dosage: BE INCREASED FOR 4 DAYS?ALSO RECEIVED 1 DF DAILY (SLOW RELEASE TABLET), 5 MG AT EVERY 4 WEEK
     Route: 048
  3. QUETIAPINE. [Suspect]
     Active Substance: QUETIAPINE
     Indication: SCHIZOPHRENIA
     Dosage: FOR 6 YEARS UP TO DATE
  4. ATORVASTATIN [Interacting]
     Active Substance: ATORVASTATIN
     Indication: DYSLIPIDAEMIA
     Dates: start: 201305
  5. DIAZEPAM. [Interacting]
     Active Substance: DIAZEPAM
     Indication: EXTRAPYRAMIDAL DISORDER
     Dosage: ALSO RECEIVED 7.5 MG
     Dates: start: 201612

REACTIONS (7)
  - Neuromuscular toxicity [Unknown]
  - Extrapyramidal disorder [Recovered/Resolved]
  - Pyrexia [Recovered/Resolved]
  - Rhabdomyolysis [Recovered/Resolved]
  - Motor dysfunction [Recovered/Resolved]
  - Drug interaction [Unknown]
  - Fall [Unknown]

NARRATIVE: CASE EVENT DATE: 201612
